FAERS Safety Report 13598666 (Version 8)
Quarter: 2017Q4

REPORT INFORMATION
  Report Type: Spontaneous
  Country: BR (occurrence: BR)
  Receive Date: 20170531
  Receipt Date: 20171228
  Transmission Date: 20180320
  Serious: Yes (Other)
  Sender: FDA-Public Use
  Company Number: BR-PFIZER INC-2015375728

PATIENT
  Age: 69 Year
  Sex: Female
  Weight: 54 kg

DRUGS (15)
  1. LORAX [Suspect]
     Active Substance: LORAZEPAM
     Dosage: 3 MG (3 TABLETS), DAILY
     Route: 048
     Dates: start: 2010
  2. LORAX [Suspect]
     Active Substance: LORAZEPAM
     Dosage: UNK
  3. LORAX [Suspect]
     Active Substance: LORAZEPAM
     Dosage: UNK
  4. LORAX [Suspect]
     Active Substance: LORAZEPAM
     Indication: SLEEP DISORDER
     Dosage: 3 MG (3 TABLETS), DAILY
     Route: 048
     Dates: start: 2010
  5. LORAX [Suspect]
     Active Substance: LORAZEPAM
     Dosage: 4 MG, DAILY (2 TABLETS IN THE MORNING AND 2 TABLETS IN THE EVENING),
  6. LORAX [Suspect]
     Active Substance: LORAZEPAM
     Dosage: UNK
  7. LORAX [Suspect]
     Active Substance: LORAZEPAM
     Dosage: UNK
  8. LOSARTAN. [Concomitant]
     Active Substance: LOSARTAN
     Dosage: UNK
     Dates: start: 2010
  9. DOSS [Concomitant]
     Active Substance: DOCUSATE SODIUM
     Dosage: UNK
     Dates: start: 2010
  10. FUROSEMIDE. [Concomitant]
     Active Substance: FUROSEMIDE
     Dosage: UNK
     Dates: start: 2010
  11. LASIX [Concomitant]
     Active Substance: FUROSEMIDE
     Dosage: UNK
     Dates: start: 2010
  12. LORAX [Suspect]
     Active Substance: LORAZEPAM
     Dosage: UNK
  13. PARACETAMOL [Concomitant]
     Active Substance: ACETAMINOPHEN
     Dosage: UNK
     Dates: start: 2010
  14. CARBAMAZEPINE. [Concomitant]
     Active Substance: CARBAMAZEPINE
     Dosage: UNK
     Dates: start: 2010
  15. SIMVASTATIN. [Concomitant]
     Active Substance: SIMVASTATIN
     Dosage: UNK
     Dates: start: 2010

REACTIONS (7)
  - Drug dependence [Not Recovered/Not Resolved]
  - Product physical issue [Not Recovered/Not Resolved]
  - Intentional product misuse [Not Recovered/Not Resolved]
  - Cholelithiasis [Unknown]
  - Abdominal distension [Unknown]
  - Poor quality drug administered [Not Recovered/Not Resolved]
  - Drug ineffective [Not Recovered/Not Resolved]

NARRATIVE: CASE EVENT DATE: 2012
